FAERS Safety Report 9684808 (Version 2)
Quarter: 2013Q4

REPORT INFORMATION
  Report Type: Spontaneous
  Country: BR (occurrence: BR)
  Receive Date: 20131112
  Receipt Date: 20131226
  Transmission Date: 20140711
  Serious: Yes (Other)
  Sender: FDA-Public Use
  Company Number: PHHY2013BR128752

PATIENT
  Age: 49 Year
  Sex: Male

DRUGS (3)
  1. RITALIN LA [Suspect]
     Indication: ATTENTION DEFICIT/HYPERACTIVITY DISORDER
     Dosage: 1 DF, DAILY
     Route: 048
     Dates: start: 20131010
  2. LANTUS [Concomitant]
     Indication: DIABETES MELLITUS
     Dosage: UNK UKN, UNK
  3. TOPTIL [Concomitant]
     Indication: BIPOLAR DISORDER
     Dosage: 1 DF, BID

REACTIONS (6)
  - Subcutaneous abscess [Unknown]
  - Agitation [Unknown]
  - Nervousness [Unknown]
  - Attention deficit/hyperactivity disorder [Not Recovered/Not Resolved]
  - Psychomotor hyperactivity [Recovering/Resolving]
  - Drug ineffective [Unknown]
